FAERS Safety Report 15431283 (Version 2)
Quarter: 2019Q2

REPORT INFORMATION
  Report Type: Spontaneous
  Country: US (occurrence: US)
  Receive Date: 20180926
  Receipt Date: 20190405
  Transmission Date: 20190711
  Serious: No
  Sender: FDA-Public Use
  Company Number: US-ALLERGAN-1812968US

PATIENT
  Sex: Female

DRUGS (8)
  1. VITAMINS                           /00067501/ [Concomitant]
     Active Substance: VITAMINS
  2. PANCRELIPASE. [Concomitant]
     Active Substance: PANCRELIPASE
  3. TRAMADOL. [Concomitant]
     Active Substance: TRAMADOL
     Indication: PAIN
  4. SYNTHROID [Concomitant]
     Active Substance: LEVOTHYROXINE SODIUM
     Indication: THYROID DISORDER
  5. TIZANIDINE. [Concomitant]
     Active Substance: TIZANIDINE
     Indication: MUSCLE RELAXANT THERAPY
  6. ZENPEP [Suspect]
     Active Substance: PANCRELIPASE AMYLASE\PANCRELIPASE LIPASE\PANCRELIPASE PROTEASE
     Indication: DYSPEPSIA
     Dosage: 5000 UNITS, UNK
     Route: 048
  7. LORAZEPAM. [Concomitant]
     Active Substance: LORAZEPAM
  8. PREDNISONE. [Concomitant]
     Active Substance: PREDNISONE
     Indication: ARTHRITIS

REACTIONS (3)
  - Abdominal discomfort [Unknown]
  - Taste disorder [Not Recovered/Not Resolved]
  - Parosmia [Not Recovered/Not Resolved]

NARRATIVE: CASE EVENT DATE: 2018
